FAERS Safety Report 8058145-3 (Version None)
Quarter: 2012Q1

REPORT INFORMATION
  Report Type: 
  Country: None (occurrence: None)
  Receive Date: 20120113
  Receipt Date: 20111214
  Transmission Date: 20120608
  Serious: Yes (Other)
  Sender: FDA-Public Use
  Company Number: 2011SP021077

PATIENT
  Sex: Female

DRUGS (4)
  1. REBETOL [Suspect]
     Indication: HEPATITIS C
     Dosage: 400 MG;QD, 600 MG;QD
  2. PEG-INTRON [Suspect]
     Indication: HEPATITIS C
     Dosage: 100 MCG;QW;SC
     Route: 058
  3. BOCEPREVIR (SCH-503034) [Suspect]
     Indication: HEPATITIS C
     Dosage: 800 MG;TID
     Dates: start: 20110425, end: 20111213
  4. OXAZEPAM [Concomitant]

REACTIONS (11)
  - DEPRESSED MOOD [None]
  - FATIGUE [None]
  - MALAISE [None]
  - MOOD SWINGS [None]
  - WEIGHT DECREASED [None]
  - PYREXIA [None]
  - HYPERSOMNIA [None]
  - FEELING ABNORMAL [None]
  - INAPPROPRIATE SCHEDULE OF DRUG ADMINISTRATION [None]
  - AGGRESSION [None]
  - MEDICATION ERROR [None]
